FAERS Safety Report 8021185-4 (Version None)
Quarter: 2011Q4

REPORT INFORMATION
  Report Type: 
  Country: None (occurrence: None)
  Receive Date: 20111223
  Receipt Date: 20111213
  Transmission Date: 20120403
  Serious: Yes (Hospitalization)
  Sender: FDA-Public Use
  Company Number: 2011030533

PATIENT
  Sex: Male
  Weight: 72.5755 kg

DRUGS (3)
  1. HIZENTRA [Suspect]
     Dosage: (10 G 1X/WEEK SUBCUTANEOUS)
     Route: 058
  2. SINGULAIR [Concomitant]
  3. ADVAIR DISKUS 100/50 [Concomitant]

REACTIONS (4)
  - TREMOR [None]
  - CHILLS [None]
  - PNEUMONIA BACTERIAL [None]
  - SEPSIS [None]
